FAERS Safety Report 15501466 (Version 1)
Quarter: 2018Q4

REPORT INFORMATION
  Report Type: Spontaneous
  Country: US (occurrence: US)
  Receive Date: 20181015
  Receipt Date: 20181015
  Transmission Date: 20190205
  Serious: Yes (Other)
  Sender: FDA-Public Use
  Company Number: US-AMGEN-USASP2018084075

PATIENT
  Age: 6 Year
  Sex: Male
  Weight: 23.7 kg

DRUGS (2)
  1. BLINCYTO [Suspect]
     Active Substance: BLINATUMOMAB
     Indication: ACUTE LYMPHOCYTIC LEUKAEMIA RECURRENT
     Dosage: 12.75 MUG, QD
     Route: 042
     Dates: start: 20180510, end: 20180607
  2. BLINCYTO [Suspect]
     Active Substance: BLINATUMOMAB
     Dosage: 13 MUG, QD
     Route: 042
     Dates: start: 20180614

REACTIONS (1)
  - Clostridium difficile colitis [Recovered/Resolved]

NARRATIVE: CASE EVENT DATE: 20180619
